FAERS Safety Report 9164577 (Version 1)
Quarter: 2013Q1

REPORT INFORMATION
  Report Type: Spontaneous
  Country: FR (occurrence: None)
  Receive Date: 20130221
  Receipt Date: 20130221
  Transmission Date: 20140127
  Serious: Yes (Hospitalization)
  Sender: FDA-Public Use
  Company Number: IMP_06563_2013

PATIENT
  Age: 17 Year
  Sex: 0

DRUGS (5)
  1. OMEPRAZOLE [Suspect]
     Indication: GASTROOESOPHAGEAL REFLUX DISEASE
  2. TACROLIMUS (TACROLIMUS) [Suspect]
     Indication: IMMUNOSUPPRESSANT DRUG THERAPY
  3. BASILIXIMAB [Concomitant]
  4. MYCOPHENOLATE MOFETIL [Concomitant]
  5. METHYLPREDNISOLONE [Concomitant]

REACTIONS (5)
  - Drug interaction [None]
  - Nephropathy toxic [None]
  - Proteinuria [None]
  - Blood creatinine increased [None]
  - Drug level increased [None]
